FAERS Safety Report 11523535 (Version 1)
Quarter: 2015Q3

REPORT INFORMATION
  Report Type: Spontaneous
  Country: US (occurrence: US)
  Receive Date: 20150903
  Receipt Date: 20150903
  Transmission Date: 20151125
  Serious: No
  Sender: FDA-Public Use
  Company Number: US-ELI_LILLY_AND_COMPANY-US201302004447

PATIENT
  Sex: Female

DRUGS (3)
  1. CYMBALTA [Suspect]
     Active Substance: DULOXETINE HYDROCHLORIDE
     Dosage: 30 MG, UNK
     Dates: start: 201302
  2. CYMBALTA [Suspect]
     Active Substance: DULOXETINE HYDROCHLORIDE
     Indication: BACK PAIN
     Dosage: 60 MG, UNK
     Dates: start: 201110
  3. CYMBALTA [Suspect]
     Active Substance: DULOXETINE HYDROCHLORIDE

REACTIONS (8)
  - Vulvovaginal dryness [Unknown]
  - Alopecia [Unknown]
  - Myalgia [Unknown]
  - Vulvovaginal mycotic infection [Recovered/Resolved]
  - Diarrhoea [Recovered/Resolved]
  - Weight loss poor [Unknown]
  - Mood altered [Unknown]
  - Arthralgia [Unknown]

NARRATIVE: CASE EVENT DATE: 201210
